FAERS Safety Report 5738346-7 (Version None)
Quarter: 2008Q2

REPORT INFORMATION
  Report Type: 
  Country: None (occurrence: None)
  Receive Date: 20080513
  Receipt Date: 20080429
  Transmission Date: 20081010
  Serious: Yes (Disabling)
  Sender: FDA-Public Use
  Company Number: APP200800147

PATIENT
  Age: 28 Year
  Sex: Male

DRUGS (16)
  1. SENSORCAINE [Suspect]
     Indication: MUSCULOSKELETAL PAIN
     Dosage: SEE IMAGE
     Dates: start: 20040512, end: 20040512
  2. SENSORCAINE [Suspect]
     Indication: MUSCULOSKELETAL PAIN
     Dosage: SEE IMAGE
     Dates: start: 20040512, end: 20040514
  3. SENSORCAINE [Suspect]
     Indication: MUSCULOSKELETAL PAIN
     Dosage: SEE IMAGE
     Dates: start: 20050112, end: 20050112
  4. SENSORCAINE [Suspect]
     Indication: MUSCULOSKELETAL PAIN
     Dosage: SEE IMAGE
     Dates: start: 20050824, end: 20050824
  5. SENSORCAINE [Suspect]
     Indication: MUSCULOSKELETAL PAIN
     Dosage: SEE IMAGE
     Dates: start: 20040514
  6. XYLOCAINE W/ EPINEPHRENE [Suspect]
     Indication: MUSCULOSKELETAL PAIN
     Dosage: SEE IMAGE
     Dates: start: 20040512, end: 20040512
  7. XYLOCAINE W/ EPINEPHRENE [Suspect]
     Indication: MUSCULOSKELETAL PAIN
     Dosage: SEE IMAGE
     Dates: start: 20050112, end: 20050112
  8. XYLOCAINE W/ EPINEPHRENE [Suspect]
     Indication: MUSCULOSKELETAL PAIN
     Dosage: SEE IMAGE
     Dates: start: 20050824, end: 20050824
  9. XYLOCAINE [Suspect]
     Indication: MUSCULOSKELETAL PAIN
     Dosage: 270 ML, CONTINOUS VIA PAIN PUMP, INJECTION
     Dates: start: 20050112
  10. PAIN PUMP [Suspect]
     Indication: MUSCULOSKELETAL PAIN
     Dates: start: 20050824
  11. DONJOY PAIN PUMP [Suspect]
     Indication: MUSCULOSKELETAL PAIN
     Dates: start: 20040512
  12. DONJOY PAIN PUMP [Suspect]
     Indication: MUSCULOSKELETAL PAIN
     Dates: start: 20050112
  13. DONJOY PAIN PUMP [Suspect]
  14. ANTIBIOTICS(ANTIBIOTICS) [Concomitant]
  15. EPINEPHRINE [Concomitant]
  16. ANCEF [Concomitant]

REACTIONS (4)
  - CHONDROLYSIS [None]
  - MUSCULOSKELETAL DISORDER [None]
  - MUSCULOSKELETAL PAIN [None]
  - SURGICAL PROCEDURE REPEATED [None]
